FAERS Safety Report 9785991 (Version 1)
Quarter: 2013Q4

REPORT INFORMATION
  Report Type: Spontaneous
  Country: FR (occurrence: None)
  Receive Date: 20131223
  Receipt Date: 20131223
  Transmission Date: 20140711
  Serious: Yes (Other)
  Sender: FDA-Public Use
  Company Number: 2013P1021988

PATIENT
  Sex: 0

DRUGS (4)
  1. VANCOMYCIN [Suspect]
  2. DISOPYRAMIDE [Concomitant]
  3. ALLOPURINOL [Concomitant]
  4. AMIODARONE [Concomitant]

REACTIONS (1)
  - Linear IgA disease [None]
